FAERS Safety Report 25050595 (Version 2)
Quarter: 2025Q2

REPORT INFORMATION
  Report Type: Spontaneous
  Country: US (occurrence: None)
  Receive Date: 20250307
  Receipt Date: 20250425
  Transmission Date: 20250716
  Serious: No
  Sender: INCYTE
  Company Number: US-INCYTE CORPORATION-2025IN002185

PATIENT
  Age: 84 Year

DRUGS (2)
  1. JAKAFI [Suspect]
     Active Substance: RUXOLITINIB
     Indication: Polycythaemia vera
  2. JAKAFI [Suspect]
     Active Substance: RUXOLITINIB
     Dosage: 20MG BID MF AND T-SAT-SUN 10 MG BID

REACTIONS (3)
  - COVID-19 [Unknown]
  - Sinusitis [Unknown]
  - Blood potassium decreased [Unknown]
